FAERS Safety Report 23559450 (Version 1)
Quarter: 2024Q1

REPORT INFORMATION
  Report Type: Spontaneous
  Country: US (occurrence: None)
  Receive Date: 20240223
  Receipt Date: 20240223
  Transmission Date: 20240409
  Serious: Yes (Hospitalization)
  Sender: FDA-Public Use
  Company Number: None

PATIENT
  Sex: Female

DRUGS (2)
  1. NEULASTA [Suspect]
     Active Substance: PEGFILGRASTIM
     Indication: Pancreatic carcinoma
     Dosage: 6MG SUBCUTANEOUS? INJECT 1 SYRINGE UNDER THE SKIN ONCE PER CHEMOTHERPY CYCLE
     Route: 058
     Dates: start: 202401
  2. RETACRIT [Suspect]
     Active Substance: EPOETIN ALFA-EPBX
     Indication: Pancreatic carcinoma
     Dosage: 20,000 UNITS ONCE WEEKLY SUBCUTANEOUS?
     Route: 058
     Dates: start: 202402

REACTIONS (2)
  - Haemoglobin decreased [None]
  - Transfusion [None]
